FAERS Safety Report 16355396 (Version 1)
Quarter: 2019Q2

REPORT INFORMATION
  Report Type: Spontaneous
  Country: ES (occurrence: ES)
  Receive Date: 20190525
  Receipt Date: 20190525
  Transmission Date: 20190711
  Serious: Yes (Other)
  Sender: FDA-Public Use
  Company Number: ES-ZYDUS-036994

PATIENT
  Age: 66 Year
  Sex: Male

DRUGS (12)
  1. SITAGLIPTIN/SITAGLIPTIN PHOSPHATE [Suspect]
     Active Substance: SITAGLIPTIN PHOSPHATE
     Indication: PRODUCT USED FOR UNKNOWN INDICATION
     Dosage: ()
     Dates: start: 20190301
  2. CALCIUM CARBONATE. [Concomitant]
     Active Substance: CALCIUM CARBONATE
  3. PIROXICAM. [Concomitant]
     Active Substance: PIROXICAM
  4. VIVACE [Concomitant]
  5. METHOTREXATE. [Concomitant]
     Active Substance: METHOTREXATE
  6. CITALOPRAM [Concomitant]
     Active Substance: CITALOPRAM HYDROBROMIDE
  7. IRON [Suspect]
     Active Substance: IRON
     Indication: PRODUCT USED FOR UNKNOWN INDICATION
     Dosage: ()
     Dates: start: 20190303
  8. LORMETAZEPAM [Concomitant]
     Active Substance: LORMETAZEPAM
  9. PREDNISONE. [Concomitant]
     Active Substance: PREDNISONE
  10. LIVAZO [Concomitant]
     Active Substance: PITAVASTATIN CALCIUM
  11. OMEPRAZOLE. [Concomitant]
     Active Substance: OMEPRAZOLE
  12. CARVEDILOL/CARVEDILOL HYDROCHLODRIDE [Suspect]
     Active Substance: CARVEDILOL HYDROCHLORIDE
     Indication: PRODUCT USED FOR UNKNOWN INDICATION
     Dates: start: 20190303

REACTIONS (2)
  - Red man syndrome [Recovering/Resolving]
  - Liver function test abnormal [Recovering/Resolving]

NARRATIVE: CASE EVENT DATE: 20190304
